FAERS Safety Report 12105351 (Version 1)
Quarter: 2016Q1

REPORT INFORMATION
  Report Type: Spontaneous
  Country: JP (occurrence: JP)
  Receive Date: 20160223
  Receipt Date: 20160223
  Transmission Date: 20160526
  Serious: Yes (Hospitalization)
  Sender: FDA-Public Use
  Company Number: JP-EISAI MEDICAL RESEARCH-EC-2015-012323

PATIENT
  Age: 67 Year

DRUGS (5)
  1. LENVIMA [Suspect]
     Active Substance: LENVATINIB
     Dosage: UNKNOWN
     Route: 048
     Dates: start: 201601
  2. ADALAT [Concomitant]
     Active Substance: NIFEDIPINE
     Dates: start: 20151118
  3. ADALAT [Concomitant]
     Active Substance: NIFEDIPINE
     Dates: end: 20151117
  4. LENVIMA [Suspect]
     Active Substance: LENVATINIB
     Indication: MEDULLARY THYROID CANCER
     Route: 048
     Dates: start: 20151116, end: 20151229
  5. LENVIMA [Suspect]
     Active Substance: LENVATINIB
     Dosage: UNKNOWN
     Route: 048
     Dates: start: 201601, end: 201601

REACTIONS (4)
  - Hypertension [Unknown]
  - Hepatic function abnormal [Unknown]
  - Dysgeusia [Recovered/Resolved]
  - Decreased appetite [Recovered/Resolved]

NARRATIVE: CASE EVENT DATE: 20151118
